FAERS Safety Report 15360500 (Version 5)
Quarter: 2018Q4

REPORT INFORMATION
  Report Type: Spontaneous
  Country: ES (occurrence: ES)
  Receive Date: 20180907
  Receipt Date: 20181210
  Transmission Date: 20190204
  Serious: Yes (Life-Threatening, Hospitalization, Other)
  Sender: FDA-Public Use
  Company Number: ES-AUROBINDO-AUR-APL-2018-044416

PATIENT
  Age: 52 Year
  Sex: Male

DRUGS (25)
  1. CIPROFLOXACIN. [Suspect]
     Active Substance: CIPROFLOXACIN
     Indication: NECROTISING SOFT TISSUE INFECTION
  2. TOBRAMYCIN. [Suspect]
     Active Substance: TOBRAMYCIN
     Indication: PSEUDOMONAS INFECTION
     Dosage: 100 MILLIGRAM, 3 TIMES A DAY
     Route: 042
  3. COLISTIN [Suspect]
     Active Substance: COLISTIN
     Indication: NECROTISING SOFT TISSUE INFECTION
     Dosage: 2 MILLION IU TID
     Route: 042
  4. AZACTAM [Concomitant]
     Active Substance: AZTREONAM
     Indication: DISCHARGE
     Dosage: UNK
     Route: 065
  5. CEFTAZIDIME. [Suspect]
     Active Substance: CEFTAZIDIME
     Indication: ESCHAR
  6. IMIPENEM AND CILASTATIN [Suspect]
     Active Substance: CILASTATIN SODIUM\IMIPENEM
     Indication: PSEUDOMONAS INFECTION
     Dosage: 1 GRAM, 3 TIMES A DAY
     Route: 065
  7. CIPROFLOXACIN. [Suspect]
     Active Substance: CIPROFLOXACIN
     Indication: DISCHARGE
  8. CEFEPIME [Concomitant]
     Active Substance: CEFEPIME HYDROCHLORIDE
     Indication: ESCHAR
  9. IMIPENEM [Concomitant]
     Active Substance: IMIPENEM
     Indication: ESCHAR
     Dosage: 1 GRAM
  10. POLYMYXIN B. [Concomitant]
     Active Substance: POLYMYXIN B
     Indication: ESCHAR
  11. CIPROFLOXACIN. [Suspect]
     Active Substance: CIPROFLOXACIN
     Indication: SKIN NECROSIS
  12. CEFTAZIDIME. [Suspect]
     Active Substance: CEFTAZIDIME
     Indication: PSEUDOMONAS INFECTION
     Dosage: 1 GRAM, 3 TIMES A DAY
     Route: 042
  13. TOBRAMYCIN. [Suspect]
     Active Substance: TOBRAMYCIN
     Indication: POST PROCEDURAL INFECTION
     Dosage: 300 MILLIGRAM, ONCE A DAY
     Route: 042
  14. TOBRAMYCIN. [Suspect]
     Active Substance: TOBRAMYCIN
     Indication: NECROTISING SOFT TISSUE INFECTION
     Dosage: TID, MAINTAINED FOR TWO WEEKS
     Route: 065
  15. AZACTAM [Concomitant]
     Active Substance: AZTREONAM
     Indication: ESCHAR
  16. IMIPENEM [Concomitant]
     Active Substance: IMIPENEM
     Indication: SKIN NECROSIS
     Dosage: UNK
     Route: 065
  17. POLYMYXIN B. [Concomitant]
     Active Substance: POLYMYXIN B
     Indication: SKIN NECROSIS
     Dosage: UNK
     Route: 065
  18. CEFTAZIDIME. [Suspect]
     Active Substance: CEFTAZIDIME
     Indication: POST PROCEDURAL INFECTION
  19. CEFEPIME [Concomitant]
     Active Substance: CEFEPIME HYDROCHLORIDE
     Indication: SKIN NECROSIS
     Dosage: UNK
     Route: 065
  20. PIPERACILLIN AND TAZOBACTAM [Concomitant]
     Active Substance: PIPERACILLIN SODIUM\TAZOBACTAM SODIUM
     Indication: ESCHAR
     Dosage: UNK
     Route: 065
  21. CIPROFLOXACIN. [Suspect]
     Active Substance: CIPROFLOXACIN
     Indication: PSEUDOMONAS INFECTION
     Dosage: UNK
     Route: 065
  22. PIPERACILLIN AND TAZOBACTAM [Concomitant]
     Active Substance: PIPERACILLIN SODIUM\TAZOBACTAM SODIUM
     Indication: SKIN NECROSIS
  23. IMIPENEM [Concomitant]
     Active Substance: IMIPENEM
     Indication: PSEUDOMONAS INFECTION
  24. CEFTAZIDIME. [Suspect]
     Active Substance: CEFTAZIDIME
     Indication: SKIN NECROSIS
  25. AZACTAM [Concomitant]
     Active Substance: AZTREONAM
     Indication: SKIN NECROSIS

REACTIONS (7)
  - Hypersensitivity [Unknown]
  - Metabolic acidosis [Recovering/Resolving]
  - Hyperlactacidaemia [Recovering/Resolving]
  - Pathogen resistance [Unknown]
  - Acute kidney injury [Recovering/Resolving]
  - Respiratory arrest [Recovering/Resolving]
  - Drug hypersensitivity [Unknown]
